FAERS Safety Report 17509404 (Version 1)
Quarter: 2020Q1

REPORT INFORMATION
  Report Type: Spontaneous
  Country: US (occurrence: US)
  Receive Date: 20200225
  Receipt Date: 20200225
  Transmission Date: 20200409
  Serious: Yes (Life-Threatening, Hospitalization)
  Sender: FDA-Public Use
  Company Number: None

PATIENT
  Age: 49 Year
  Sex: Female
  Weight: 31.3 kg

DRUGS (2)
  1. INSULIN (INSULIN ASPART. HUMAN 100UNT/ML INJ) [Suspect]
     Active Substance: INSULIN ASPART
     Dosage: ?          OTHER DOSE:4 UNITS;?
     Route: 058
     Dates: start: 20131223
  2. INSULIN (INSULIN GLARGINE. HUMAN 100UNT/ML INJ) [Suspect]
     Active Substance: INSULIN GLARGINE
     Indication: DIABETES MELLITUS
     Dosage: ?          OTHER STRENGTH:100 UNT/ML;OTHER DOSE:10 UNITS;?
     Route: 058
     Dates: start: 20131206

REACTIONS (2)
  - Diabetic ketoacidosis [None]
  - Hyperglycaemia [None]

NARRATIVE: CASE EVENT DATE: 20190818
